FAERS Safety Report 6365696-6 (Version None)
Quarter: 2009Q3

REPORT INFORMATION
  Report Type: 
  Country: None (occurrence: None)
  Receive Date: 20090919
  Receipt Date: 20090813
  Transmission Date: 20100115
  Serious: No
  Sender: FDA-Public Use
  Company Number: US-ABBOTT-09P-163-0592050-00

PATIENT
  Sex: Female
  Weight: 90.8 kg

DRUGS (14)
  1. HUMIRA [Suspect]
     Indication: RHEUMATOID ARTHRITIS
     Dates: start: 20080101, end: 20090805
  2. HUMIRA [Suspect]
     Indication: ANKYLOSING SPONDYLITIS
  3. HYDROXYCHLOROQUINE [Concomitant]
     Indication: RHEUMATOID ARTHRITIS
  4. AMLODIPINE [Concomitant]
     Indication: HYPERTENSION
  5. HYDROCHLOROTHIAZIDE [Concomitant]
     Indication: HYPERTENSION
  6. SERTRALINE HCL [Concomitant]
     Indication: PAIN
  7. AMITRIPTYLINE [Concomitant]
     Indication: PAIN
  8. KLOR-CON [Concomitant]
     Indication: BLOOD POTASSIUM DECREASED
  9. FOLIC ACID [Concomitant]
     Indication: DRUG USE FOR UNKNOWN INDICATION
  10. NORCO [Concomitant]
     Indication: PAIN
  11. CLONAZEPAM [Concomitant]
     Indication: RESTLESS LEGS SYNDROME
  12. LYRICA [Concomitant]
     Indication: RESTLESS LEGS SYNDROME
  13. MIRAPEX [Concomitant]
     Indication: RESTLESS LEGS SYNDROME
  14. MORPHINE SULFATE INJ [Concomitant]
     Indication: PAIN

REACTIONS (2)
  - JOINT SWELLING [None]
  - OEDEMA PERIPHERAL [None]
